FAERS Safety Report 23223709 (Version 1)
Quarter: 2023Q4

REPORT INFORMATION
  Report Type: Report from Study
  Country: CA (occurrence: CA)
  Receive Date: 20231124
  Receipt Date: 20231124
  Transmission Date: 20240110
  Serious: Yes (Other)
  Sender: FDA-Public Use
  Company Number: CA-JNJFOC-20230513145

PATIENT
  Sex: Male

DRUGS (1)
  1. IMBRUVICA [Suspect]
     Active Substance: IBRUTINIB
     Indication: Chronic lymphocytic leukaemia
     Route: 048

REACTIONS (7)
  - Atrial fibrillation [Unknown]
  - Chest discomfort [Unknown]
  - Headache [Unknown]
  - Arthralgia [Unknown]
  - Dysphagia [Unknown]
  - Cardiac murmur [Unknown]
  - Wrist surgery [Unknown]
